FAERS Safety Report 8962832 (Version 2)
Quarter: 2012Q4

REPORT INFORMATION
  Report Type: Report from Study
  Country: KR (occurrence: KR)
  Receive Date: 20121214
  Receipt Date: 20121224
  Transmission Date: 20130627
  Serious: Yes (Death, Hospitalization, Other)
  Sender: FDA-Public Use
  Company Number: KR-ASTELLAS-2012US012196

PATIENT
  Age: 77 Year
  Sex: Male
  Weight: 57 kg

DRUGS (1)
  1. ERLOTINIB TABLET [Suspect]
     Indication: LUNG NEOPLASM MALIGNANT
     Dosage: 150 mg, UID/QD
     Route: 048
     Dates: start: 20111109, end: 20121129

REACTIONS (5)
  - Cerebral infarction [Unknown]
  - Metastases to central nervous system [Unknown]
  - Malignant neoplasm progression [Fatal]
  - Hypophagia [Unknown]
  - Pelvic pain [Fatal]
